FAERS Safety Report 9926473 (Version 1)
Quarter: 2014Q1

REPORT INFORMATION
  Report Type: Spontaneous
  Country: US (occurrence: US)
  Receive Date: 20140226
  Receipt Date: 20140226
  Transmission Date: 20141002
  Serious: Yes (Other)
  Sender: FDA-Public Use
  Company Number: US-GILEAD-2014-0095437

PATIENT
  Age: 85 Year
  Sex: Female

DRUGS (1)
  1. LETAIRIS [Suspect]
     Indication: PULMONARY HYPERTENSION
     Dosage: 10 MG, QD
     Route: 065
     Dates: end: 20140116

REACTIONS (4)
  - Gastroenteritis salmonella [Unknown]
  - Renal disorder [Unknown]
  - Cardiac disorder [Unknown]
  - Fluid retention [Unknown]
